FAERS Safety Report 9639895 (Version 1)
Quarter: 2013Q4

REPORT INFORMATION
  Report Type: Spontaneous
  Country: FR (occurrence: FR)
  Receive Date: 20131023
  Receipt Date: 20131023
  Transmission Date: 20140711
  Serious: Yes (Death)
  Sender: FDA-Public Use
  Company Number: FR-ACCORD-020046

PATIENT
  Sex: 0

DRUGS (3)
  1. ETOPOSIDE [Suspect]
     Indication: SEMINOMA
  2. CISPLATIN [Suspect]
     Indication: SEMINOMA
  3. IFOSFAMIDE [Suspect]
     Indication: SEMINOMA

REACTIONS (2)
  - Septic shock [Fatal]
  - Off label use [Unknown]
